FAERS Safety Report 6092585-7 (Version None)
Quarter: 2009Q1

REPORT INFORMATION
  Report Type: 
  Country: None (occurrence: None)
  Receive Date: 20090225
  Receipt Date: 20080325
  Transmission Date: 20090719
  Serious: No
  Sender: FDA-Public Use
  Company Number: US-BRISTOL-MYERS SQUIBB COMPANY-14125629

PATIENT
  Age: 63 Year
  Sex: Male
  Weight: 74 kg

DRUGS (2)
  1. KENALOG-10 [Suspect]
     Indication: SWELLING
  2. ZOLOFT [Concomitant]

REACTIONS (1)
  - INJECTION SITE DISCOLOURATION [None]
